FAERS Safety Report 20592068 (Version 1)
Quarter: 2022Q1

REPORT INFORMATION
  Report Type: Report from Study
  Country: CA (occurrence: CA)
  Receive Date: 20220314
  Receipt Date: 20220314
  Transmission Date: 20220423
  Serious: Yes (Other)
  Sender: FDA-Public Use
  Company Number: CA-JNJFOC-20220104053

PATIENT
  Age: 40 Year
  Sex: Female

DRUGS (1)
  1. REMICADE [Suspect]
     Active Substance: INFLIXIMAB
     Indication: Hidradenitis
     Route: 042
     Dates: start: 20200204

REACTIONS (10)
  - Appendicectomy [Recovering/Resolving]
  - Cyst [Unknown]
  - Kidney infection [Unknown]
  - Abdominal abscess [Unknown]
  - Hidradenitis [Unknown]
  - Cystitis [Not Recovered/Not Resolved]
  - Abdominal pain [Recovering/Resolving]
  - Abdominal discomfort [Not Recovered/Not Resolved]
  - Fungal infection [Unknown]
  - Stress [Unknown]

NARRATIVE: CASE EVENT DATE: 20220102
